FAERS Safety Report 17308661 (Version 1)
Quarter: 2020Q1

REPORT INFORMATION
  Report Type: Spontaneous
  Country: US (occurrence: US)
  Receive Date: 20200123
  Receipt Date: 20200123
  Transmission Date: 20200409
  Serious: Yes (Other)
  Sender: FDA-Public Use
  Company Number: US-REGENERON PHARMACEUTICALS, INC.-2020-13117

PATIENT

DRUGS (3)
  1. EYLEA [Suspect]
     Active Substance: AFLIBERCEPT
     Indication: MACULAR DEGENERATION
     Dosage: UNK, MONTHLY
     Route: 031
     Dates: start: 201911
  2. ALOE VERA [Concomitant]
     Active Substance: ALOE VERA LEAF
     Indication: GASTROOESOPHAGEAL REFLUX DISEASE
  3. FORTEO [Concomitant]
     Active Substance: TERIPARATIDE
     Indication: PRODUCT USED FOR UNKNOWN INDICATION
     Dosage: UNK

REACTIONS (8)
  - Photopsia [Unknown]
  - Ocular hyperaemia [Unknown]
  - Eye laser surgery [Unknown]
  - Myalgia [Recovered/Resolved]
  - Eye haemorrhage [Unknown]
  - Hypoaesthesia [Recovered/Resolved]
  - Foreign body sensation in eyes [Recovered/Resolved]
  - Vitreous floaters [Unknown]
